FAERS Safety Report 9178589 (Version 3)
Quarter: 2013Q3

REPORT INFORMATION
  Report Type: Report from Study
  Country: US (occurrence: US)
  Receive Date: 20130321
  Receipt Date: 20130729
  Transmission Date: 20140515
  Serious: Yes (Life-Threatening, Hospitalization)
  Sender: FDA-Public Use
  Company Number: PHEH2013US006423

PATIENT
  Sex: Female

DRUGS (6)
  1. GILENYA [Suspect]
     Indication: MULTIPLE SCLEROSIS
     Dosage: 0.5 MG, QD
     Route: 048
     Dates: start: 20120802
  2. XANAX [Concomitant]
     Dosage: 0.25 MG, UNK
  3. VALIUM [Concomitant]
     Dosage: 10 MG, UNK
  4. LISINOPRIL [Concomitant]
     Dosage: 10 MG, UNK
  5. BACLOFEN [Concomitant]
     Dosage: 10 MG, UNK
  6. PERCOCET [Concomitant]

REACTIONS (3)
  - Cardiac arrest [Unknown]
  - Meningitis [Unknown]
  - Cerebrospinal fluid leakage [Unknown]
